FAERS Safety Report 7119386-2 (Version None)
Quarter: 2010Q4

REPORT INFORMATION
  Report Type: 
  Country: None (occurrence: None)
  Receive Date: 20101123
  Receipt Date: 20101117
  Transmission Date: 20110411
  Serious: Yes (Hospitalization)
  Sender: FDA-Public Use
  Company Number: FR-MERCK-1011FRA00068

PATIENT
  Age: 41 Year
  Sex: Female

DRUGS (4)
  1. ISENTRESS [Suspect]
     Indication: HIV INFECTION
     Route: 048
     Dates: start: 20101014
  2. NEVIRAPINE [Suspect]
     Route: 048
     Dates: start: 20100910, end: 20101004
  3. EMTRICITABINE AND TENOFOVIR DISOPROXIL FUMARATE [Suspect]
     Indication: HIV INFECTION
     Route: 048
     Dates: start: 20100910
  4. EFAVIRENZ AND EMTRICITABINE AND TENOFOVIR DISOPROXIL FUMARATE [Suspect]
     Indication: HIV INFECTION
     Route: 048
     Dates: start: 20101007, end: 20101014

REACTIONS (4)
  - DERMATITIS EXFOLIATIVE [None]
  - PRURITUS GENERALISED [None]
  - RASH GENERALISED [None]
  - SKIN EXFOLIATION [None]
